FAERS Safety Report 9370152 (Version 2)
Quarter: 2013Q3

REPORT INFORMATION
  Report Type: Spontaneous
  Country: US (occurrence: None)
  Receive Date: 20130624
  Receipt Date: 20130703
  Transmission Date: 20140515
  Serious: Yes (Other)
  Sender: FDA-Public Use
  Company Number: 2013P1008871

PATIENT
  Age: 17 Year
  Sex: Female

DRUGS (1)
  1. MYORISAN [Suspect]
     Dates: start: 20130509, end: 20130608

REACTIONS (3)
  - Pregnancy [None]
  - Exposure during pregnancy [None]
  - Treatment noncompliance [None]
